FAERS Safety Report 19403288 (Version 1)
Quarter: 2021Q2

REPORT INFORMATION
  Report Type: Spontaneous
  Country: US (occurrence: US)
  Receive Date: 20210610
  Receipt Date: 20210610
  Transmission Date: 20210717
  Serious: Yes (Death)
  Sender: FDA-Public Use
  Company Number: None

PATIENT
  Sex: Female
  Weight: 64.35 kg

DRUGS (10)
  1. DIPHENHYDRAMINE 50MG/MLIV [Concomitant]
  2. ABRAXANE [Suspect]
     Active Substance: PACLITAXEL
     Indication: RECTAL CANCER
     Dosage: ?          OTHER FREQUENCY:EVERY 2 WEEKS;?
     Route: 042
     Dates: start: 20210218
  3. DEXAMETHASONE 10MH/ML IV [Concomitant]
  4. NEULASTA 6MG/0.6ML SQ [Concomitant]
  5. OPDIVO 100MG/10ML IV [Concomitant]
  6. FAMOTIDINE 20MG/2ML IV [Concomitant]
  7. KEYTRUDA 100MG/4ML IV [Concomitant]
  8. ERBITUX 200MG/100ML IV [Concomitant]
  9. PALONOSETRON 0.25MG IV [Concomitant]
  10. CARBOPLATIN. [Suspect]
     Active Substance: CARBOPLATIN
     Indication: RECTAL CANCER
     Dosage: ?          OTHER FREQUENCY:EVERY 2 WEEKS;?
     Route: 042
     Dates: start: 20210218

REACTIONS (1)
  - Death [None]
